FAERS Safety Report 6073148-6 (Version None)
Quarter: 2009Q1

REPORT INFORMATION
  Report Type: 
  Country: None (occurrence: None)
  Receive Date: 20090203
  Receipt Date: 20090122
  Transmission Date: 20090719
  Serious: Yes (Death, Hospitalization)
  Sender: FDA-Public Use
  Company Number: THYM-1000889

PATIENT
  Age: 53 Year
  Sex: Male

DRUGS (2)
  1. THYMOGLOBULINE (ANTI-THYMOCYTE GLOBULIN (RABBIT) POWDER FOR INFUSION [Suspect]
     Indication: RENAL TRANSPLANT
     Dosage: 1.5 MG/KG, QD, INTRAVENOUS
     Route: 042
     Dates: start: 20090105, end: 20090115
  2. GLUCOCORTICOSTEROIDS [Concomitant]

REACTIONS (6)
  - ANURIA [None]
  - KIDNEY TRANSPLANT REJECTION [None]
  - PERITONEAL DIALYSIS [None]
  - SEPSIS [None]
  - SERUM SICKNESS [None]
  - URINARY TRACT INFECTION [None]
